APPROVED DRUG PRODUCT: IBUPROFEN SODIUM
Active Ingredient: IBUPROFEN SODIUM
Strength: EQ 200MG BASE
Dosage Form/Route: TABLET;ORAL
Application: A206581 | Product #001
Applicant: PERRIGO R AND D CO
Approved: Aug 3, 2015 | RLD: No | RS: No | Type: DISCN